FAERS Safety Report 7488947-3 (Version None)
Quarter: 2011Q1

REPORT INFORMATION
  Report Type: 
  Country: None (occurrence: None)
  Receive Date: 20110316
  Receipt Date: 20100305
  Transmission Date: 20110831
  Serious: Yes (Life-Threatening, Other)
  Sender: FDA-Public Use
  Company Number: 2010BH006281

PATIENT
  Age: 68 Year
  Sex: Male

DRUGS (13)
  1. MEPERIDINE HCL [Suspect]
     Indication: COLONOSCOPY
     Dosage: 50 MG;ONCE;IVBOL, 12.5 MG;ONCE;IVBOL
     Route: 040
     Dates: start: 20100305, end: 20100305
  2. MEPERIDINE HCL [Suspect]
     Indication: COLONOSCOPY
     Dosage: 50 MG;ONCE;IVBOL, 12.5 MG;ONCE;IVBOL
     Route: 040
     Dates: start: 20100306, end: 20100306
  3. ASPIRIN [Concomitant]
  4. ALLOPURINOL [Concomitant]
  5. IMDUR [Concomitant]
  6. PLAVIX [Concomitant]
  7. COREG [Concomitant]
  8. SIMVASTATIN [Concomitant]
  9. ALDACTONE [Concomitant]
  10. BENAZEPRIL HYDROCHLORIDE [Concomitant]
  11. FERROUS SULFATE TAB [Concomitant]
  12. MIDAZOLAM HCL [Suspect]
     Indication: COLONOSCOPY
     Dosage: 2 MG;ONCE;IVBOL, 3 MG;ONCE;IVBOL
     Route: 040
     Dates: start: 20100305, end: 20100305
  13. MIDAZOLAM HCL [Suspect]
     Indication: COLONOSCOPY
     Dosage: 2 MG;ONCE;IVBOL, 3 MG;ONCE;IVBOL
     Route: 040
     Dates: start: 20100306, end: 20100306

REACTIONS (2)
  - RESPIRATORY DISTRESS [None]
  - BRADYCARDIA [None]
